FAERS Safety Report 20913990 (Version 1)
Quarter: 2022Q2

REPORT INFORMATION
  Report Type: Spontaneous
  Country: US (occurrence: US)
  Receive Date: 20220604
  Receipt Date: 20220604
  Transmission Date: 20220721
  Serious: Yes (Hospitalization, Other)
  Sender: FDA-Public Use
  Company Number: US-MLMSERVICE-20220525-3578266-1

PATIENT
  Age: 55 Year
  Sex: Male

DRUGS (2)
  1. LEVOTHYROXINE [Interacting]
     Active Substance: LEVOTHYROXINE
     Indication: Primary hypothyroidism
  2. CARBAMAZEPINE [Interacting]
     Active Substance: CARBAMAZEPINE
     Indication: Affective disorder

REACTIONS (4)
  - Hypothyroidism [Recovering/Resolving]
  - Hyponatraemia [Recovering/Resolving]
  - Depressed mood [Recovering/Resolving]
  - Drug interaction [Unknown]
